FAERS Safety Report 10079602 (Version 2)
Quarter: 2014Q2

REPORT INFORMATION
  Report Type: Spontaneous
  Country: JP (occurrence: JP)
  Receive Date: 20140415
  Receipt Date: 20140423
  Transmission Date: 20141212
  Serious: Yes (Death, Other)
  Sender: FDA-Public Use
  Company Number: JP-CELGENEUS-087-21880-14041572

PATIENT
  Age: 74 Year
  Sex: Female
  Weight: 39 kg

DRUGS (8)
  1. REVLIMID [Suspect]
     Indication: PLASMA CELL MYELOMA
     Dosage: 15 MILLIGRAM
     Route: 048
     Dates: start: 20131029, end: 20140406
  2. DECADRON [Suspect]
     Indication: PLASMA CELL MYELOMA
     Dosage: 15 MILLIGRAM
     Route: 048
     Dates: start: 20131029, end: 20140401
  3. THYRADIN S [Concomitant]
     Indication: HYPOTHYROIDISM
     Dosage: 12.5 MICROGRAM
     Route: 048
     Dates: start: 20130121, end: 20140406
  4. ACICLOVIR [Concomitant]
     Indication: ANTIVIRAL PROPHYLAXIS
     Dosage: 200 MILLIGRAM
     Route: 048
     Dates: start: 20130212, end: 20140406
  5. OMEPRAZOLE [Concomitant]
     Indication: GASTRITIS PROPHYLAXIS
     Dosage: 20 MILLIGRAM
     Route: 048
     Dates: start: 20130212, end: 20140406
  6. BUFFERIN [Concomitant]
     Indication: THROMBOSIS PROPHYLAXIS
     Dosage: 81 MILLIGRAM
     Route: 048
     Dates: start: 20131029, end: 20140406
  7. CALONAL [Concomitant]
     Indication: PRODUCT USED FOR UNKNOWN INDICATION
     Dosage: 1200 MILLIGRAM
     Route: 048
     Dates: start: 20130131, end: 20140406
  8. OXYCONTIN [Concomitant]
     Indication: PAIN PROPHYLAXIS
     Dosage: 10 MILLIGRAM
     Route: 048
     Dates: start: 20130204, end: 20140406

REACTIONS (4)
  - Large intestine perforation [Fatal]
  - Peritonitis [Fatal]
  - Disseminated intravascular coagulation [Fatal]
  - Sepsis [Fatal]
